FAERS Safety Report 8021782-6 (Version None)
Quarter: 2012Q1

REPORT INFORMATION
  Report Type: 
  Country: None (occurrence: None)
  Receive Date: 20120104
  Receipt Date: 20111231
  Transmission Date: 20120608
  Serious: Yes (Death, Other)
  Sender: FDA-Public Use
  Company Number: PHHY2011US113842

PATIENT

DRUGS (8)
  1. GANCICLOVIR [Concomitant]
     Dosage: ONCE DAILY TO COMPLETE ONE YEAR
     Route: 048
  2. BASILIXIMAB [Suspect]
     Indication: LIVER AND SMALL INTESTINE TRANSPLANT
  3. STEROIDS NOS [Concomitant]
     Indication: LIVER AND SMALL INTESTINE TRANSPLANT
  4. PIPERACILLIN [Concomitant]
  5. TAZOBACTAM [Concomitant]
  6. TACROLIMUS [Concomitant]
     Indication: LIVER AND SMALL INTESTINE TRANSPLANT
  7. FLUCONAZOLE [Concomitant]
  8. GANCICLOVIR [Concomitant]
     Indication: ANTIVIRAL PROPHYLAXIS
     Dosage: FOR TWO WEEK
     Route: 042

REACTIONS (2)
  - DEATH [None]
  - CYTOMEGALOVIRUS INFECTION [None]
